FAERS Safety Report 13178505 (Version 8)
Quarter: 2017Q4

REPORT INFORMATION
  Report Type: Report from Study
  Country: US (occurrence: US)
  Receive Date: 20170202
  Receipt Date: 20171006
  Transmission Date: 20180320
  Serious: Yes (Hospitalization, Other)
  Sender: FDA-Public Use
  Company Number: US-GILEAD-2017-0254399

PATIENT
  Age: 56 Year
  Sex: Female
  Weight: 81.63 kg

DRUGS (7)
  1. SILDENAFIL CITRATE. [Concomitant]
     Active Substance: SILDENAFIL CITRATE
  2. ORENITRAM [Suspect]
     Active Substance: TREPROSTINIL
     Dosage: 2 MG, UNK
     Route: 048
  3. ORENITRAM [Suspect]
     Active Substance: TREPROSTINIL
     Indication: PULMONARY HYPERTENSION
     Dosage: 1.125 MG, TID
     Route: 048
     Dates: start: 20160421
  4. AMBRISENTAN [Suspect]
     Active Substance: AMBRISENTAN
     Indication: PRODUCT USED FOR UNKNOWN INDICATION
     Dosage: 10 MG, QD
     Route: 065
     Dates: start: 20170119
  5. UPTRAVI [Suspect]
     Active Substance: SELEXIPAG
     Indication: PRODUCT USED FOR UNKNOWN INDICATION
     Dosage: UNK
     Route: 065
  6. AMLODIPINE [Concomitant]
     Active Substance: AMLODIPINE BESYLATE
  7. WARFARIN [Concomitant]
     Active Substance: WARFARIN

REACTIONS (14)
  - Palpitations [Recovered/Resolved]
  - Headache [Not Recovered/Not Resolved]
  - Diarrhoea [Unknown]
  - Blood pressure increased [Not Recovered/Not Resolved]
  - Flushing [Not Recovered/Not Resolved]
  - Pneumonia [Not Recovered/Not Resolved]
  - Joint swelling [Unknown]
  - Dyspnoea [Not Recovered/Not Resolved]
  - Migraine [Not Recovered/Not Resolved]
  - Kidney infection [Not Recovered/Not Resolved]
  - Headache [Recovered/Resolved]
  - Gastric disorder [Unknown]
  - Nausea [Unknown]
  - Drug dose omission [Unknown]

NARRATIVE: CASE EVENT DATE: 201701
